FAERS Safety Report 8596215 (Version 4)
Quarter: 2014Q2

REPORT INFORMATION
  Report Type: Spontaneous
  Country: US (occurrence: US)
  Receive Date: 20120605
  Receipt Date: 20140422
  Transmission Date: 20141212
  Serious: Yes (Hospitalization, Other)
  Sender: FDA-Public Use
  Company Number: US-ASTRAZENECA-2012SE35707

PATIENT
  Age: 67 Year
  Sex: Female

DRUGS (37)
  1. NEXIUM [Suspect]
     Indication: BARRETT^S OESOPHAGUS
     Route: 048
     Dates: start: 2001, end: 2010
  2. NEXIUM [Suspect]
     Indication: DYSPEPSIA
     Route: 048
     Dates: start: 2001, end: 2010
  3. NEXIUM [Suspect]
     Indication: REFLUX GASTRITIS
     Route: 048
     Dates: start: 2001, end: 2010
  4. NEXIUM [Suspect]
     Indication: ABDOMINAL PAIN UPPER
     Route: 048
     Dates: start: 2001, end: 2010
  5. NEXIUM [Suspect]
     Indication: GASTROOESOPHAGEAL REFLUX DISEASE
     Route: 048
     Dates: start: 2001, end: 2010
  6. NEXIUM [Suspect]
     Indication: BARRETT^S OESOPHAGUS
     Route: 048
     Dates: start: 20020618
  7. NEXIUM [Suspect]
     Indication: DYSPEPSIA
     Route: 048
     Dates: start: 20020618
  8. NEXIUM [Suspect]
     Indication: REFLUX GASTRITIS
     Route: 048
     Dates: start: 20020618
  9. NEXIUM [Suspect]
     Indication: ABDOMINAL PAIN UPPER
     Route: 048
     Dates: start: 20020618
  10. NEXIUM [Suspect]
     Indication: GASTROOESOPHAGEAL REFLUX DISEASE
     Route: 048
     Dates: start: 20020618
  11. NEXIUM [Suspect]
     Indication: BARRETT^S OESOPHAGUS
     Route: 048
     Dates: start: 20060410
  12. NEXIUM [Suspect]
     Indication: DYSPEPSIA
     Route: 048
     Dates: start: 20060410
  13. NEXIUM [Suspect]
     Indication: REFLUX GASTRITIS
     Route: 048
     Dates: start: 20060410
  14. NEXIUM [Suspect]
     Indication: ABDOMINAL PAIN UPPER
     Route: 048
     Dates: start: 20060410
  15. NEXIUM [Suspect]
     Indication: GASTROOESOPHAGEAL REFLUX DISEASE
     Route: 048
     Dates: start: 20060410
  16. NEXIUM [Suspect]
     Indication: BARRETT^S OESOPHAGUS
     Route: 048
     Dates: start: 20071109
  17. NEXIUM [Suspect]
     Indication: DYSPEPSIA
     Route: 048
     Dates: start: 20071109
  18. NEXIUM [Suspect]
     Indication: REFLUX GASTRITIS
     Route: 048
     Dates: start: 20071109
  19. NEXIUM [Suspect]
     Indication: ABDOMINAL PAIN UPPER
     Route: 048
     Dates: start: 20071109
  20. NEXIUM [Suspect]
     Indication: GASTROOESOPHAGEAL REFLUX DISEASE
     Route: 048
     Dates: start: 20071109
  21. PRILOSEC [Suspect]
     Indication: DYSPEPSIA
     Route: 048
     Dates: start: 2009
  22. PRILOSEC [Suspect]
     Indication: REFLUX GASTRITIS
     Route: 048
     Dates: start: 2009
  23. PRILOSEC [Suspect]
     Indication: ABDOMINAL PAIN UPPER
     Route: 048
     Dates: start: 2009
  24. PRILOSEC [Suspect]
     Indication: GASTROOESOPHAGEAL REFLUX DISEASE
     Route: 048
     Dates: start: 2009
  25. ZEGERID OTC [Concomitant]
     Indication: DYSPEPSIA
     Dates: start: 2008
  26. ZEGERID OTC [Concomitant]
     Indication: REFLUX GASTRITIS
     Dates: start: 2008
  27. ZEGERID OTC [Concomitant]
     Indication: ABDOMINAL PAIN UPPER
     Dates: start: 2008
  28. PROTONIX [Concomitant]
     Indication: DYSPEPSIA
     Dates: start: 2009
  29. PROTONIX [Concomitant]
     Indication: REFLUX GASTRITIS
     Dates: start: 2009
  30. PROTONIX [Concomitant]
     Indication: ABDOMINAL PAIN UPPER
     Dates: start: 2009
  31. TAGAMET [Concomitant]
  32. TUMS [Concomitant]
  33. ATENOLOL [Concomitant]
  34. LISINOPRIL [Concomitant]
     Indication: BLOOD PRESSURE ABNORMAL
  35. MULTI VITAMINS [Concomitant]
  36. TYLENOL [Concomitant]
  37. ADVIL [Concomitant]

REACTIONS (17)
  - Gallbladder disorder [Unknown]
  - Hiatus hernia [Unknown]
  - Uterine cancer [Unknown]
  - Bladder disorder [Unknown]
  - Osteoporosis [Unknown]
  - Multiple fractures [Unknown]
  - Wrist fracture [Unknown]
  - Body height decreased [Unknown]
  - Joint injury [Unknown]
  - Arthropathy [Unknown]
  - Cataract [Unknown]
  - Arthritis [Unknown]
  - Rheumatoid arthritis [Unknown]
  - Osteopenia [Unknown]
  - Foot deformity [Unknown]
  - Limb injury [Unknown]
  - Nausea [Unknown]
